FAERS Safety Report 21488302 (Version 1)
Quarter: 2022Q4

REPORT INFORMATION
  Report Type: Spontaneous
  Country: US (occurrence: US)
  Receive Date: 20221020
  Receipt Date: 20221020
  Transmission Date: 20230112
  Serious: No
  Sender: FDA-Public Use
  Company Number: US-CIPLA LTD.-2022US02272

PATIENT
  Sex: Male

DRUGS (8)
  1. GABAPENTIN [Suspect]
     Active Substance: GABAPENTIN
     Indication: Neuropathy peripheral
     Dosage: 300 MILLIGRAM, QD IN EVENING, FROM ONE AND A HALF YEARS AGO
     Route: 065
  2. TAMSULOSIN [Concomitant]
     Active Substance: TAMSULOSIN
     Indication: Prostatic disorder
     Dosage: 0.4 MILLIGRAM, QD, EVENING, SINCE 10 YEARS
     Route: 065
  3. CARVIDOL [Concomitant]
     Indication: Blood pressure abnormal
     Dosage: 50 MILLIGRAM, BID, SINCE 5 YEARS
     Route: 065
  4. HYDRAZINE SULFATE [Concomitant]
     Active Substance: HYDRAZINE SULFATE
     Indication: Blood pressure abnormal
     Dosage: 25 MILLIGRAM, TID, SINCE 5 YEARS
     Route: 065
  5. FINASTERIDE [Concomitant]
     Active Substance: FINASTERIDE
     Indication: Prostatic disorder
     Dosage: 5 MILLIGRAM, QD, IN MORNING, SINCE 10 YEARS
     Route: 065
  6. LEVOTHYROXINE [Concomitant]
     Active Substance: LEVOTHYROXINE
     Indication: Thyroid disorder
     Dosage: 25 MILLIGRAM, QD IN MORNING, SINCE 20 YEARS
     Route: 065
  7. ZYPREXA [Concomitant]
     Active Substance: OLANZAPINE
     Indication: Mental disorder
     Dosage: 2.5 MILLIGRAM, PRN, SINCE 20 YEARS
     Route: 065
  8. KLONOPIN [Concomitant]
     Active Substance: CLONAZEPAM
     Indication: Mental disorder
     Dosage: 1 MILLIGRAM, PRN, SINCE 20 YEARS
     Route: 065

REACTIONS (1)
  - Peripheral swelling [Not Recovered/Not Resolved]

NARRATIVE: CASE EVENT DATE: 20220401
